FAERS Safety Report 17409220 (Version 2)
Quarter: 2020Q1

REPORT INFORMATION
  Report Type: Spontaneous
  Country: CA (occurrence: CA)
  Receive Date: 20200212
  Receipt Date: 20200304
  Transmission Date: 20200409
  Serious: Yes (Other)
  Sender: FDA-Public Use
  Company Number: NVSC2020CA036319

PATIENT
  Age: 16 Year
  Sex: Male
  Weight: 48 kg

DRUGS (2)
  1. COSENTYX [Suspect]
     Active Substance: SECUKINUMAB
     Indication: SPONDYLOARTHROPATHY
     Dosage: 150 MG, Q4W
     Route: 058
     Dates: start: 20191007, end: 20200121
  2. COSENTYX [Suspect]
     Active Substance: SECUKINUMAB
     Indication: PSORIATIC ARTHROPATHY

REACTIONS (1)
  - Pneumothorax spontaneous [Recovering/Resolving]

NARRATIVE: CASE EVENT DATE: 20190131
